FAERS Safety Report 4428792-6 (Version None)
Quarter: 2004Q3

REPORT INFORMATION
  Report Type: 
  Country: None (occurrence: None)
  Receive Date: 20040818
  Receipt Date: 20040806
  Transmission Date: 20050211
  Serious: Yes (Other)
  Sender: FDA-Public Use
  Company Number: JP-JNJFOC-20040701117

PATIENT
  Sex: Female

DRUGS (13)
  1. RISPERDAL [Suspect]
     Indication: SCHIZOPHRENIA
     Route: 049
  2. LORAZEPAM [Concomitant]
     Route: 049
  3. LORAZEPAM [Concomitant]
     Route: 049
  4. LORAZEPAM [Concomitant]
     Indication: ANXIETY
     Route: 049
  5. CHLORPROMAZINE TANNATE [Concomitant]
     Route: 049
  6. FLUNITRAZEPAM [Concomitant]
     Route: 049
  7. ALDIOXA [Concomitant]
     Route: 049
  8. STOMACHICS AND DIGESTIVES [Concomitant]
     Route: 049
  9. STOMACHICS AND DIGESTIVES [Concomitant]
     Route: 049
  10. STOMACHICS AND DIGESTIVES [Concomitant]
     Route: 049
  11. STOMACHICS AND DIGESTIVES [Concomitant]
     Route: 049
  12. SENNOSIDE [Concomitant]
     Indication: CONSTIPATION
     Route: 049
  13. SODIUM PICOSULFATE [Concomitant]
     Indication: CONSTIPATION
     Route: 049

REACTIONS (4)
  - ANXIETY [None]
  - ERYTHROPENIA [None]
  - HAEMATOCRIT DECREASED [None]
  - HAEMOGLOBIN DECREASED [None]
